FAERS Safety Report 6381824-0 (Version None)
Quarter: 2009Q3

REPORT INFORMATION
  Report Type: 
  Country: None (occurrence: None)
  Receive Date: 20090930
  Receipt Date: 20090918
  Transmission Date: 20100115
  Serious: Yes (Hospitalization)
  Sender: FDA-Public Use
  Company Number: JP-ELI_LILLY_AND_COMPANY-JP200909000725

PATIENT
  Age: 79 Year
  Sex: Male

DRUGS (3)
  1. GEMZAR [Suspect]
     Indication: PLEURAL MESOTHELIOMA MALIGNANT
     Dosage: 1000 MG/M2, OTHER
     Route: 042
     Dates: start: 20061118, end: 20080611
  2. CARBOPLATIN [Concomitant]
     Indication: PLEURAL MESOTHELIOMA MALIGNANT
     Dosage: UNK, UNK
     Route: 042
     Dates: start: 20061202, end: 20080611
  3. NAVELBINE [Concomitant]
     Indication: PLEURAL MESOTHELIOMA MALIGNANT
     Dosage: UNK, UNK
     Route: 042
     Dates: start: 20061118

REACTIONS (2)
  - DIFFUSE LARGE B-CELL LYMPHOMA [None]
  - OFF LABEL USE [None]
